FAERS Safety Report 5321539-0 (Version None)
Quarter: 2007Q2

REPORT INFORMATION
  Report Type: 
  Country: None (occurrence: None)
  Receive Date: 20070220
  Receipt Date: 20070111
  Transmission Date: 20071010
  Serious: No
  Sender: FDA-Public Use
  Company Number: TPA2007A00108

PATIENT
  Age: 70 Year
  Sex: Female
  Weight: 68.0396 kg

DRUGS (4)
  1. ROZEREM [Suspect]
     Indication: INSOMNIA
     Dosage: 8 MG QHS PER ORAL
     Route: 048
     Dates: start: 20070110, end: 20070111
  2. CELEBREX [Concomitant]
  3. ZYRTEC [Concomitant]
  4. PREMARIN [Concomitant]

REACTIONS (4)
  - DIZZINESS [None]
  - DRUG INEFFECTIVE [None]
  - HEART RATE INCREASED [None]
  - MIDDLE INSOMNIA [None]
